FAERS Safety Report 4915971-4 (Version None)
Quarter: 2006Q1

REPORT INFORMATION
  Report Type: 
  Country: None (occurrence: None)
  Receive Date: 20060214
  Receipt Date: 20060126
  Transmission Date: 20060701
  Serious: Yes (Other)
  Sender: FDA-Public Use
  Company Number: US200601005288

PATIENT
  Age: 45 Year
  Sex: Male

DRUGS (2)
  1. CYMBALTA [Suspect]
     Dosage: 30 + 60 MG, DAILY (1/D), ORAL
     Route: 048
     Dates: start: 20050801, end: 20060101
  2. TRAMADOL (TRAMADOL) [Concomitant]

REACTIONS (2)
  - CONVULSION [None]
  - OVERDOSE [None]
